FAERS Safety Report 20046362 (Version 1)
Quarter: 2021Q4

REPORT INFORMATION
  Report Type: Report from Study
  Country: US (occurrence: US)
  Receive Date: 20211109
  Receipt Date: 20211109
  Transmission Date: 20220303
  Serious: Yes (Hospitalization)
  Sender: FDA-Public Use
  Company Number: US-BAUSCH-BL-2021-036471

PATIENT
  Age: 51 Year
  Sex: Female

DRUGS (6)
  1. ALREX [Suspect]
     Active Substance: LOTEPREDNOL ETABONATE
     Indication: Dry eye
     Dosage: ONE DROP IN EACH EYE, TWICE A DAY, STARTED IN OCT/NOV 2020
     Route: 065
     Dates: start: 2020
  2. ALREX [Suspect]
     Active Substance: LOTEPREDNOL ETABONATE
     Indication: Eye pruritus
  3. AZELASTINE [Concomitant]
     Active Substance: AZELASTINE
     Indication: Dyspnoea
     Dates: start: 202010
  4. FLUTICASONE [Concomitant]
     Active Substance: FLUTICASONE
     Indication: Dyspnoea
     Dates: start: 202010
  5. PREDNISONE [Concomitant]
     Active Substance: PREDNISONE
     Indication: Product used for unknown indication
     Dates: start: 202105
  6. TIROSINT [Concomitant]
     Active Substance: LEVOTHYROXINE SODIUM
     Indication: Product used for unknown indication
     Dates: start: 202103

REACTIONS (10)
  - Dyspnoea [Unknown]
  - Rhinorrhoea [Unknown]
  - Nasal congestion [Unknown]
  - Dizziness [Unknown]
  - Productive cough [Unknown]
  - Purulent discharge [Unknown]
  - Otorrhoea [Unknown]
  - Instillation site pain [Unknown]
  - Drug ineffective [Unknown]
  - Inappropriate schedule of product administration [Unknown]

NARRATIVE: CASE EVENT DATE: 20200101
